FAERS Safety Report 5204158-6 (Version None)
Quarter: 2007Q1

REPORT INFORMATION
  Report Type: 
  Country: None (occurrence: None)
  Receive Date: 20070110
  Receipt Date: 20051220
  Transmission Date: 20070707
  Serious: No
  Sender: FDA-Public Use
  Company Number: US-BRISTOL-MYERS SQUIBB COMPANY-13223474

PATIENT
  Age: 46 Year
  Sex: Female

DRUGS (5)
  1. ABILIFY [Suspect]
     Indication: BIPOLAR DISORDER
     Dates: start: 20051001
  2. GEODON [Suspect]
     Dates: end: 20050901
  3. DEPAKOTE [Concomitant]
  4. SYNTHROID [Concomitant]
  5. NEURONTIN [Concomitant]

REACTIONS (1)
  - TREMOR [None]
